FAERS Safety Report 25363403 (Version 2)
Quarter: 2025Q2

REPORT INFORMATION
  Report Type: Report from Study
  Country: KR (occurrence: KR)
  Receive Date: 20250527
  Receipt Date: 20250602
  Transmission Date: 20250717
  Serious: Yes (Hospitalization)
  Sender: DAIICHI
  Company Number: KR-DSJP-DS-2025-143061-KR

PATIENT
  Age: 85 Year
  Sex: Male
  Weight: 67.6 kg

DRUGS (13)
  1. EDOXABAN [Suspect]
     Active Substance: EDOXABAN
     Indication: Atrial fibrillation
     Dosage: 1 DOSAGE FORM (60 MG), QD
     Route: 048
     Dates: start: 20240418, end: 20240506
  2. EDOXABAN [Suspect]
     Active Substance: EDOXABAN
     Dosage: 1 DOSAGE FORM (30 MG), QD
     Route: 048
     Dates: start: 20240808, end: 20241103
  3. EDOXABAN [Suspect]
     Active Substance: EDOXABAN
     Dosage: 1 DOSAGE FORM (30 MG), QD
     Route: 048
     Dates: start: 20250306
  4. CICOR [Concomitant]
     Indication: Cardiac failure congestive
     Dosage: 1 DOSAGE FORM, BID
     Route: 048
     Dates: start: 20231127
  5. OLMESARTAN MEDOXOMIL [Concomitant]
     Active Substance: OLMESARTAN MEDOXOMIL
     Indication: Hypertension
     Dosage: 1 DOSAGE FORM, QD
     Route: 048
     Dates: start: 20220719
  6. DILATREND SR [Concomitant]
     Indication: Hypertension
     Dosage: 1 DOSAGE FORM, QD
     Route: 048
     Dates: start: 20230306
  7. LIPITOR [Concomitant]
     Active Substance: ATORVASTATIN CALCIUM
     Indication: Cardiac failure congestive
     Dosage: 1 DOSAGE FORM, QD
     Route: 048
     Dates: start: 20220719
  8. CHONG KUN DANG PELUBIPROFEN [Concomitant]
     Indication: Prophylaxis
     Dosage: 1 DOSAGE FORM, BID
     Route: 048
     Dates: start: 20220719
  9. CHONG KUN DANG PELUBIPROFEN [Concomitant]
     Indication: Central nervous system stimulation
  10. LASIX [Concomitant]
     Active Substance: FUROSEMIDE
     Indication: Cardiac failure congestive
     Dosage: 1 DOSAGE FORM, QD
     Route: 048
     Dates: start: 20240321
  11. ALDACTONE [Concomitant]
     Active Substance: SPIRONOLACTONE
     Indication: Cardiac failure congestive
     Dosage: 1 DOSAGE FORM, QD
     Route: 048
     Dates: start: 20240321
  12. HARNAL [Concomitant]
     Active Substance: TAMSULOSIN HYDROCHLORIDE
     Indication: Benign prostatic hyperplasia
     Dosage: 1 DOSAGE FORM, QD
     Route: 048
     Dates: start: 20220719
  13. HARNAL [Concomitant]
     Active Substance: TAMSULOSIN HYDROCHLORIDE
     Indication: Prophylaxis

REACTIONS (1)
  - Bile duct stone [Recovered/Resolved]

NARRATIVE: CASE EVENT DATE: 20240506
